FAERS Safety Report 5306097-9 (Version None)
Quarter: 2007Q2

REPORT INFORMATION
  Report Type: 
  Country: None (occurrence: None)
  Receive Date: 20070424
  Receipt Date: 20060906
  Transmission Date: 20071010
  Serious: Yes (Death)
  Sender: FDA-Public Use
  Company Number: US-BRISTOL-MYERS SQUIBB COMPANY-13500681

PATIENT
  Age: 51 Year
  Sex: Male

DRUGS (1)
  1. PARAPLATIN [Suspect]
     Indication: PROSTATE CANCER
     Dates: start: 20051101

REACTIONS (1)
  - PROSTATE CANCER [None]
